FAERS Safety Report 11813242 (Version 1)
Quarter: 2015Q4

REPORT INFORMATION
  Report Type: Spontaneous
  Country: US (occurrence: US)
  Receive Date: 20151209
  Receipt Date: 20151209
  Transmission Date: 20160305
  Serious: No
  Sender: FDA-Public Use
  Company Number: US-HOSPIRA-2428017

PATIENT
  Age: 72 Year
  Sex: Female
  Weight: 99.3 kg

DRUGS (2)
  1. SODIUM CHLORIDE. [Suspect]
     Active Substance: SODIUM CHLORIDE
     Indication: MEDICATION DILUTION
     Dosage: UNKNOWN
     Route: 041
     Dates: start: 20140627
  2. AMPICILLIN [Suspect]
     Active Substance: AMPICILLIN
     Indication: ANTIBIOTIC THERAPY
     Dosage: UNKNOWN
     Route: 041
     Dates: start: 20140627

REACTIONS (2)
  - Poor quality drug administered [Recovered/Resolved]
  - No adverse event [None]

NARRATIVE: CASE EVENT DATE: 20140627
